FAERS Safety Report 9217329 (Version 1)
Quarter: 2013Q2

REPORT INFORMATION
  Report Type: Spontaneous
  Country: GB (occurrence: GB)
  Receive Date: 20130408
  Receipt Date: 20130408
  Transmission Date: 20140414
  Serious: Yes (Congenital Anomaly, Other)
  Sender: FDA-Public Use
  Company Number: GB-ASTRAZENECA-2013SE20710

PATIENT
  Age: 10 Year
  Sex: Female

DRUGS (1)
  1. ZOLADEX [Suspect]
     Route: 064

REACTIONS (6)
  - Pituitary enlargement [Recovered/Resolved]
  - Gastrointestinal disorder [Unknown]
  - Blindness [Unknown]
  - Ovarian hyperstimulation syndrome [Unknown]
  - Blood glucose abnormal [Unknown]
  - Post gastric surgery syndrome [Unknown]
